FAERS Safety Report 9581829 (Version 3)
Quarter: 2014Q1

REPORT INFORMATION
  Report Type: Spontaneous
  Country: CZ (occurrence: CZ)
  Receive Date: 20131002
  Receipt Date: 20140227
  Transmission Date: 20141002
  Serious: Yes (Hospitalization, Other)
  Sender: FDA-Public Use
  Company Number: CZ-ACTAVIS-2013-16984

PATIENT
  Age: 27 Year
  Sex: Female

DRUGS (3)
  1. TRAMADOL (UNKNOWN) [Suspect]
     Indication: SPINAL CORD INJURY CERVICAL
     Dosage: 150-1050 MG, DAILY
     Route: 048
     Dates: start: 201109, end: 201112
  2. TRAMADOL (UNKNOWN) [Suspect]
     Indication: CONTUSION
  3. TRAMADOL (UNKNOWN) [Suspect]
     Indication: TENDERNESS

REACTIONS (10)
  - Epilepsy [Unknown]
  - Decreased appetite [Unknown]
  - Weight decreased [Unknown]
  - Emotional disorder [Unknown]
  - Restlessness [Unknown]
  - Hyperhidrosis [Recovered/Resolved]
  - Activities of daily living impaired [Unknown]
  - Drug abuse [Unknown]
  - Intentional overdose [Unknown]
  - Drug withdrawal syndrome [Unknown]
